FAERS Safety Report 8837176 (Version 2)
Quarter: 2012Q4

REPORT INFORMATION
  Report Type: 
  Country: US (occurrence: US)
  Receive Date: 20121011
  Receipt Date: 20121024
  Transmission Date: 20130627
  Serious: Yes (Hospitalization)
  Sender: FDA-Public Use
  Company Number: US-ROCHE-1142581

PATIENT
  Age: 39 Year
  Sex: Female

DRUGS (6)
  1. MYCOPHENOLATE MOFETIL [Suspect]
     Indication: SYSTEMIC LUPUS ERYTHEMATOSUS
     Route: 048
  2. MYCOPHENOLATE MOFETIL [Suspect]
     Dosage: two 500 mg tablets in am and in pm, therapy start: 03/Oct/2012
     Route: 048
  3. DIFLUCAN [Concomitant]
  4. PREDNISONE [Concomitant]
     Indication: SYSTEMIC LUPUS ERYTHEMATOSUS
     Route: 048
     Dates: start: 20120919
  5. PLAQUENIL [Concomitant]
  6. BACTRIM DS [Concomitant]

REACTIONS (4)
  - Respiratory distress [Recovered/Resolved]
  - White blood cell count increased [Not Recovered/Not Resolved]
  - Oxygen saturation decreased [Unknown]
  - Dyspnoea [Recovered/Resolved]
